FAERS Safety Report 7379278-0 (Version None)
Quarter: 2011Q1

REPORT INFORMATION
  Report Type: 
  Country: None (occurrence: None)
  Receive Date: 20110328
  Receipt Date: 20110119
  Transmission Date: 20110831
  Serious: Yes (Other)
  Sender: FDA-Public Use
  Company Number: US-AMGEN-USASP2010001593

PATIENT
  Age: 67 Year
  Sex: Male
  Weight: 100.68 kg

DRUGS (3)
  1. CYTOXAN [Concomitant]
     Indication: LEUKAEMIA
     Dosage: 100 MG, QD
     Route: 048
     Dates: start: 20101021
  2. PROCRIT [Suspect]
     Indication: ANAEMIA
     Dosage: 40000 IU, QWK
     Route: 058
     Dates: start: 20100909, end: 20101005
  3. PREDNISONE [Concomitant]
     Indication: LEUKAEMIA
     Dosage: 30 MG, QD
     Dates: start: 20101021

REACTIONS (1)
  - APLASIA PURE RED CELL [None]
